FAERS Safety Report 8132751-X (Version None)
Quarter: 2012Q1

REPORT INFORMATION
  Report Type: 
  Country: None (occurrence: None)
  Receive Date: 20120208
  Receipt Date: 20120127
  Transmission Date: 20120608
  Serious: Yes (Hospitalization)
  Sender: FDA-Public Use
  Company Number: TCI2012A00355

PATIENT
  Age: 71 Year
  Sex: Male

DRUGS (2)
  1. ACTOS [Suspect]
     Indication: TYPE 2 DIABETES MELLITUS
     Dosage: LESS THAN 15 MG
     Route: 048
     Dates: start: 20091023, end: 20110521
  2. ANTIGOUT PREPARATIONS [Concomitant]

REACTIONS (1)
  - HEPATIC NEOPLASM MALIGNANT [None]
